FAERS Safety Report 8207876-0 (Version None)
Quarter: 2012Q1

REPORT INFORMATION
  Report Type: 
  Country: None (occurrence: None)
  Receive Date: 20120314
  Receipt Date: 20120307
  Transmission Date: 20120608
  Serious: Yes (Other)
  Sender: FDA-Public Use
  Company Number: US-PFIZER INC-2012062099

PATIENT
  Age: 39 Year
  Sex: Male

DRUGS (3)
  1. PEPCID [Concomitant]
     Dosage: UNK
  2. SOLU-MEDROL [Suspect]
     Dosage: 60 MG, SINGLE
     Route: 042
  3. BENADRYL [Concomitant]
     Dosage: UNK

REACTIONS (1)
  - FAMILIAL PERIODIC PARALYSIS [None]
